APPROVED DRUG PRODUCT: ISOSORBIDE DINITRATE
Active Ingredient: ISOSORBIDE DINITRATE
Strength: 30MG
Dosage Form/Route: TABLET;ORAL
Application: A087564 | Product #001
Applicant: SUN PHARMACEUTICAL INDUSTRIES INC
Approved: Sep 18, 1986 | RLD: No | RS: No | Type: DISCN